FAERS Safety Report 10637595 (Version 3)
Quarter: 2015Q1

REPORT INFORMATION
  Report Type: Spontaneous
  Country: JP (occurrence: JP)
  Receive Date: 20141208
  Receipt Date: 20150108
  Transmission Date: 20150720
  Serious: Yes (Death, Hospitalization)
  Sender: FDA-Public Use
  Company Number: JP-ELI_LILLY_AND_COMPANY-JP201412002173

PATIENT
  Age: 67 Year
  Sex: Male
  Weight: 66 kg

DRUGS (7)
  1. DESYREL [Concomitant]
     Active Substance: TRAZODONE HYDROCHLORIDE
     Indication: PRODUCT USED FOR UNKNOWN INDICATION
     Route: 065
  2. ALIMTA [Suspect]
     Active Substance: PEMETREXED DISODIUM
     Indication: LUNG ADENOCARCINOMA STAGE IV
     Dosage: 910 MG, OTHER
     Route: 042
     Dates: start: 20131105, end: 20140421
  3. AVASTIN [Suspect]
     Active Substance: BEVACIZUMAB
     Indication: LUNG ADENOCARCINOMA STAGE IV
     Dosage: 990 MG, OTHER
     Route: 042
     Dates: start: 20131105, end: 20140421
  4. PANVITAN [Concomitant]
     Indication: PROPHYLAXIS
     Dosage: 0.5 MG, UNK
     Route: 065
     Dates: start: 20131101, end: 20140421
  5. CARBOPLATIN. [Concomitant]
     Active Substance: CARBOPLATIN
     Indication: LUNG ADENOCARCINOMA STAGE IV
     Dosage: AUC 5
     Route: 042
     Dates: start: 20131105, end: 20140114
  6. METHYCOBAL [Concomitant]
     Active Substance: METHYLCOBALAMIN
     Indication: PROPHYLAXIS
     Dosage: 500 UG, UNK
     Route: 065
     Dates: start: 20131101, end: 20140421
  7. LENDORMIN [Concomitant]
     Active Substance: BROTIZOLAM
     Indication: PRODUCT USED FOR UNKNOWN INDICATION
     Route: 065

REACTIONS (2)
  - Oesophageal perforation [Fatal]
  - Mediastinitis [Fatal]

NARRATIVE: CASE EVENT DATE: 20140201
